FAERS Safety Report 7418973-1 (Version None)
Quarter: 2011Q2

REPORT INFORMATION
  Report Type: 
  Country: None (occurrence: None)
  Receive Date: 20110415
  Receipt Date: 20110406
  Transmission Date: 20111010
  Serious: Yes (Other)
  Sender: FDA-Public Use
  Company Number: US-ELI_LILLY_AND_COMPANY-US201104002470

PATIENT
  Sex: Female

DRUGS (1)
  1. HUMATROPE [Suspect]
     Indication: ONCOLOGIC COMPLICATION
     Dosage: 4 MG, QD

REACTIONS (2)
  - CATHETERISATION CARDIAC [None]
  - DRUG DOSE OMISSION [None]
